FAERS Safety Report 6868289-7 (Version None)
Quarter: 2010Q3

REPORT INFORMATION
  Report Type: 
  Country: None (occurrence: None)
  Receive Date: 20100722
  Receipt Date: 20080520
  Transmission Date: 20110219
  Serious: No
  Sender: FDA-Public Use
  Company Number: US-PFIZER INC-2008043424

PATIENT
  Sex: Female
  Weight: 74.84 kg

DRUGS (3)
  1. CHANTIX [Suspect]
     Indication: SMOKING CESSATION THERAPY
     Dates: start: 20080519
  2. METFORMIN [Concomitant]
     Indication: DIABETES MELLITUS
  3. EXCEDRIN (MIGRAINE) [Concomitant]

REACTIONS (1)
  - INCORRECT DOSE ADMINISTERED [None]
